FAERS Safety Report 9386899 (Version 2)
Quarter: 2013Q3

REPORT INFORMATION
  Report Type: Spontaneous
  Country: CH (occurrence: None)
  Receive Date: 20130702
  Receipt Date: 20130718
  Transmission Date: 20140515
  Serious: Yes (Hospitalization)
  Sender: FDA-Public Use
  Company Number: 2013-258

PATIENT
  Age: 65 Year
  Sex: Male

DRUGS (3)
  1. PRIALT (ZICONOTIDE) INTRATHECAL INFUSION [Suspect]
     Route: 037
     Dates: start: 20120802
  2. HYDROMORPHONE HCL [Suspect]
     Route: 037
     Dates: end: 20130425
  3. LIORESAL (BACLOFEN) [Suspect]
     Route: 037

REACTIONS (3)
  - Granuloma [None]
  - Device issue [None]
  - Muscle spasticity [None]
